FAERS Safety Report 8405475-9 (Version None)
Quarter: 2012Q2

REPORT INFORMATION
  Report Type: 
  Country: None (occurrence: None)
  Receive Date: 20120604
  Receipt Date: 20120529
  Transmission Date: 20120825
  Serious: Yes (Hospitalization)
  Sender: FDA-Public Use
  Company Number: US-BIOGENIDEC-2012BI014732

PATIENT
  Sex: Female

DRUGS (2)
  1. AVONEX [Suspect]
     Route: 030
     Dates: start: 20120216, end: 20120401
  2. AVONEX [Suspect]
     Indication: MULTIPLE SCLEROSIS
     Route: 030
     Dates: start: 20110201

REACTIONS (6)
  - CHILLS [None]
  - TREMOR [None]
  - MULTIPLE SCLEROSIS [None]
  - OCULAR HYPERAEMIA [None]
  - ADVERSE EVENT [None]
  - VISION BLURRED [None]
